FAERS Safety Report 9058671 (Version 1)
Quarter: 2013Q1

REPORT INFORMATION
  Report Type: Spontaneous
  Country: US (occurrence: US)
  Receive Date: 20130204
  Receipt Date: 20130204
  Transmission Date: 20140127
  Serious: No
  Sender: FDA-Public Use
  Company Number: US-ROXANE LABORATORIES, INC.-2013-RO-00192RO

PATIENT
  Age: 58 Year
  Sex: Female

DRUGS (1)
  1. BUTORPHANOL [Suspect]
     Indication: OESOPHAGEAL PAIN
     Route: 045
     Dates: start: 201301

REACTIONS (1)
  - Feeling abnormal [Not Recovered/Not Resolved]
